FAERS Safety Report 4308988-4 (Version None)
Quarter: 2004Q1

REPORT INFORMATION
  Report Type: 
  Country: None (occurrence: None)
  Receive Date: 20040227
  Receipt Date: 20040218
  Transmission Date: 20041129
  Serious: Yes (Disabling)
  Sender: FDA-Public Use
  Company Number: 2004193697FR

PATIENT
  Age: 34 Year
  Sex: Male

DRUGS (21)
  1. SOLU-MEDROL [Suspect]
     Dosage: SEE IMAGE
     Route: 042
     Dates: start: 19991116, end: 19991120
  2. SOLU-MEDROL [Suspect]
     Dosage: SEE IMAGE
     Route: 042
     Dates: start: 19991207, end: 19991211
  3. SOLU-MEDROL [Suspect]
     Dosage: SEE IMAGE
     Route: 042
     Dates: start: 19991227, end: 19991231
  4. CISPLATIN [Suspect]
     Dosage: SEE IMAGE
     Route: 042
     Dates: start: 19991116, end: 19991120
  5. CISPLATIN [Suspect]
     Dosage: SEE IMAGE
     Route: 042
     Dates: start: 19991207, end: 19991211
  6. CISPLATIN [Suspect]
     Dosage: SEE IMAGE
     Route: 042
     Dates: start: 19991227, end: 19991231
  7. BLEOMYCIN [Suspect]
     Dosage: SEE IMAGE
     Route: 042
     Dates: start: 19991113, end: 19991113
  8. BLEOMYCIN [Suspect]
     Dosage: SEE IMAGE
     Route: 042
     Dates: start: 19991116, end: 19991116
  9. BLEOMYCIN [Suspect]
     Dosage: SEE IMAGE
     Route: 042
     Dates: start: 19991120, end: 19991120
  10. BLEOMYCIN [Suspect]
     Dosage: SEE IMAGE
     Route: 042
     Dates: start: 19991122, end: 19991122
  11. BLEOMYCIN [Suspect]
     Dosage: SEE IMAGE
     Route: 042
     Dates: start: 19991130, end: 19991130
  12. BLEOMYCIN [Suspect]
     Dosage: SEE IMAGE
     Route: 042
     Dates: start: 19991207, end: 19991207
  13. BLEOMYCIN [Suspect]
     Dosage: SEE IMAGE
     Route: 042
     Dates: start: 19991227, end: 19991227
  14. BLEOMYCIN [Suspect]
     Dosage: SEE IMAGE
     Route: 042
     Dates: start: 19991227, end: 19991227
  15. BLEOMYCIN [Suspect]
     Dosage: SEE IMAGE
     Route: 042
     Dates: start: 19991227, end: 19991227
  16. VEPESID [Suspect]
     Dosage: SEE IMAGE
     Route: 042
     Dates: start: 19991116, end: 19991120
  17. VEPESID [Suspect]
     Dosage: SEE IMAGE
     Route: 042
     Dates: start: 19991207, end: 19991211
  18. VEPESID [Suspect]
     Dosage: SEE IMAGE
     Route: 042
     Dates: start: 19991227, end: 19991231
  19. KYTRIL [Suspect]
     Dosage: 1 DF, IV
     Route: 042
     Dates: start: 19991116, end: 19991120
  20. KYTRIL [Suspect]
     Dosage: 1 DF, IV
     Route: 042
     Dates: start: 19991207, end: 19991211
  21. KYTRIL [Suspect]
     Dosage: 1 DF, IV
     Route: 042
     Dates: start: 19991227, end: 19991231

REACTIONS (1)
  - OSTEONECROSIS [None]
